FAERS Safety Report 19855479 (Version 1)
Quarter: 2021Q3

REPORT INFORMATION
  Report Type: Spontaneous
  Country: US (occurrence: US)
  Receive Date: 20210920
  Receipt Date: 20210920
  Transmission Date: 20211014
  Serious: No
  Sender: FDA-Public Use
  Company Number: US-TEVA-2021-US-1948960

PATIENT
  Age: 56 Year
  Sex: Female

DRUGS (2)
  1. FREMANEZUMAB [Suspect]
     Active Substance: FREMANEZUMAB
     Route: 065
     Dates: end: 202106
  2. FREMANEZUMAB [Suspect]
     Active Substance: FREMANEZUMAB

REACTIONS (2)
  - Therapeutic response changed [Unknown]
  - Alopecia [Recovered/Resolved]
